FAERS Safety Report 6879683-2 (Version None)
Quarter: 2010Q3

REPORT INFORMATION
  Report Type: 
  Country: None (occurrence: None)
  Receive Date: 20100728
  Receipt Date: 20100715
  Transmission Date: 20110219
  Serious: Yes (Other)
  Sender: FDA-Public Use
  Company Number: US-ELI_LILLY_AND_COMPANY-US201007004904

PATIENT
  Sex: Female

DRUGS (8)
  1. FORTEO [Suspect]
     Indication: OSTEOPOROSIS
     Dosage: 20 UG, DAILY (1/D)
     Route: 065
  2. FORTEO [Suspect]
     Dosage: 20 UG, DAILY (1/D)
     Route: 065
     Dates: start: 20100601
  3. PREDNISONE [Concomitant]
     Dosage: UNK, UNKNOWN
     Route: 065
  4. OXYCONTIN [Concomitant]
     Dosage: UNK, UNKNOWN
     Route: 065
  5. HYDROCODONE BITARTRATE [Concomitant]
     Dosage: UNK, UNKNOWN
     Route: 065
  6. ORAFEN                             /00321701/ [Concomitant]
     Dosage: UNK, UNKNOWN
     Route: 065
  7. TRAZODONE [Concomitant]
     Dosage: UNK, UNKNOWN
     Route: 065
  8. CALCIUM [Concomitant]

REACTIONS (7)
  - ARTHRALGIA [None]
  - CEREBROVASCULAR ACCIDENT [None]
  - FALL [None]
  - JOINT INJURY [None]
  - MUSCULOSKELETAL DISORDER [None]
  - SPEECH DISORDER [None]
  - UPPER LIMB FRACTURE [None]
